FAERS Safety Report 24874209 (Version 1)
Quarter: 2025Q1

REPORT INFORMATION
  Report Type: Spontaneous
  Country: US (occurrence: None)
  Receive Date: 20250120
  Receipt Date: 20250120
  Transmission Date: 20250409
  Serious: Yes (Hospitalization)
  Sender: FDA-CTU
  Company Number: None

PATIENT
  Age: 73 Year
  Sex: Female
  Weight: 83.46 kg

DRUGS (2)
  1. REZDIFFRA [Suspect]
     Active Substance: RESMETIROM
     Indication: Hepatic steatosis
     Dosage: FREQUENCY : DAILY;?
     Route: 048
     Dates: start: 20241101, end: 20250112
  2. ROSUVASTATIN [Suspect]
     Active Substance: ROSUVASTATIN

REACTIONS (5)
  - Alcohol abuse [None]
  - Hepatic enzyme abnormal [None]
  - Therapy cessation [None]
  - Liver injury [None]
  - Jaundice [None]

NARRATIVE: CASE EVENT DATE: 20250110
